FAERS Safety Report 4281959-2 (Version None)
Quarter: 2004Q1

REPORT INFORMATION
  Report Type: 
  Country: None (occurrence: None)
  Receive Date: 20040129
  Receipt Date: 20040121
  Transmission Date: 20041129
  Serious: Yes (Death, Other)
  Sender: FDA-Public Use
  Company Number: PHBS2004CA01131

PATIENT
  Age: 79 Year
  Sex: Female

DRUGS (22)
  1. CICLOSPORIN [Suspect]
     Indication: PYODERMA GANGRENOSUM
     Dosage: 175 MG, BID
     Route: 065
  2. CICLOSPORIN [Suspect]
     Dosage: 150 MG, BID
     Route: 065
  3. CICLOSPORIN [Suspect]
     Dosage: 100 MG/D
     Route: 065
  4. WARFARIN SODIUM [Concomitant]
  5. FUROSEMIDE [Concomitant]
  6. MULTIVITAMIN PREPARATIONS WITH OR W/O MINERAL [Concomitant]
  7. IPRATROPIUM BROMIDE [Concomitant]
  8. SALBUTAMOL [Concomitant]
  9. PREDNISONE [Concomitant]
     Dosage: 80 MG/D
  10. PREDNISONE [Concomitant]
     Dosage: 10 MG/D
  11. PREDNISONE [Concomitant]
     Dosage: 120 MG/D
  12. PREDNISONE [Concomitant]
     Dosage: 80 MG/D
  13. BISPHOSPHONATES [Concomitant]
  14. TRIAMCINOLONE [Concomitant]
  15. CEPHALEXIN [Concomitant]
  16. KALTOSTAT [Concomitant]
  17. TACROLIMUS [Suspect]
     Indication: PYODERMA GANGRENOSUM
     Dosage: 0.1 MG/KG
     Route: 048
  18. KENALOG [Concomitant]
  19. MYCOPHENOLATE MOFETIL [Suspect]
     Dosage: 500 MG, QD
  20. MYCOPHENOLATE MOFETIL [Suspect]
     Dosage: 2 G/DAY
  21. APLISOL [Concomitant]
  22. TACROLIMUS [Concomitant]
     Route: 061

REACTIONS (12)
  - ACUTE PSYCHOSIS [None]
  - BLOOD CREATININE INCREASED [None]
  - ILEUS [None]
  - MARKEDLY REDUCED DIETARY INTAKE [None]
  - PATHOGEN RESISTANCE [None]
  - PEPTOSTREPTOCOCCUS INFECTION [None]
  - PROTEUS INFECTION [None]
  - PSEUDOMONAS INFECTION [None]
  - PYODERMA GANGRENOSUM [None]
  - RENAL IMPAIRMENT [None]
  - WOUND INFECTION [None]
  - WOUND INFECTION STAPHYLOCOCCAL [None]
